FAERS Safety Report 24115820 (Version 1)
Quarter: 2024Q3

REPORT INFORMATION
  Report Type: Report from Study
  Country: CN (occurrence: CN)
  Receive Date: 20240721
  Receipt Date: 20240721
  Transmission Date: 20241017
  Serious: Yes (Other)
  Sender: ROCHE
  Company Number: CN-BoehringerIngelheim-2024-BI-039395

PATIENT

DRUGS (4)
  1. ALTEPLASE [Suspect]
     Active Substance: ALTEPLASE
     Indication: Ischaemic stroke
     Dosage: DOSE 0.9 MG/KG, 10% OF THE DRUG WAS GIVEN BY INTRAVENOUS INJECTION
     Route: 042
  2. ALTEPLASE [Suspect]
     Active Substance: ALTEPLASE
     Dosage: DOSE 0.9 MG/KG, THE REMAINING 90% OF THE DRUG WAS GIVEN BY INTRAVENOUS PUMPING TO ENSURE THAT THE PU
     Route: 042
  3. URAPIDIL [Concomitant]
     Active Substance: URAPIDIL
     Indication: Hypertension
     Dosage: 4 - 8 MG/H
     Route: 042
  4. URAPIDIL [Concomitant]
     Active Substance: URAPIDIL
     Dosage: 10-50MG
     Route: 042

REACTIONS (2)
  - Drug ineffective [Unknown]
  - No adverse event [Unknown]
